FAERS Safety Report 5104494-8 (Version None)
Quarter: 2006Q3

REPORT INFORMATION
  Report Type: 
  Country: None (occurrence: None)
  Receive Date: 20060908
  Receipt Date: 20060908
  Transmission Date: 20061208
  Serious: Yes (Hospitalization)
  Sender: FDA-Public Use
  Company Number: None

PATIENT
  Age: 58 Year
  Sex: Male
  Weight: 97.3 kg

DRUGS (1)
  1. PERCOCET-5 [Suspect]
     Indication: ARTHRALGIA
     Dosage: PO
     Route: 048

REACTIONS (7)
  - ACCIDENTAL OVERDOSE [None]
  - ADJUSTMENT DISORDER [None]
  - AMNESIA [None]
  - DRUG ABUSER [None]
  - DRUG DEPENDENCE [None]
  - SOCIAL PROBLEM [None]
  - THERAPY NON-RESPONDER [None]
